FAERS Safety Report 6221870-0 (Version None)
Quarter: 2009Q2

REPORT INFORMATION
  Report Type: 
  Country: None (occurrence: None)
  Receive Date: 20090609
  Receipt Date: 20090609
  Transmission Date: 20091009
  Serious: Yes (Other)
  Sender: FDA-Public Use
  Company Number: None

PATIENT
  Sex: Male

DRUGS (3)
  1. LAMOTRIGINE [Suspect]
     Indication: BIPOLAR DISORDER
     Dosage: STARTED 1-27-09 QD PO
     Route: 048
     Dates: start: 20090127
  2. LITHIUM CARBONATE [Concomitant]
  3. PERPHENAZINE [Concomitant]

REACTIONS (1)
  - RASH PRURITIC [None]
